FAERS Safety Report 25721633 (Version 2)
Quarter: 2025Q3

REPORT INFORMATION
  Report Type: Spontaneous
  Country: US (occurrence: US)
  Receive Date: 20250825
  Receipt Date: 20250827
  Transmission Date: 20251020
  Serious: No
  Sender: PFIZER
  Company Number: US-PFIZER INC-PV202500101916

PATIENT
  Sex: Male

DRUGS (1)
  1. LORBRENA [Suspect]
     Active Substance: LORLATINIB
     Indication: Non-small cell lung cancer
     Dates: start: 202410

REACTIONS (10)
  - Muscle twitching [Unknown]
  - Compulsions [Unknown]
  - Insomnia [Unknown]
  - Crying [Unknown]
  - Fat tissue increased [Unknown]
  - Weight increased [Unknown]
  - Movement disorder [Unknown]
  - Sleep disorder [Unknown]
  - Cerebral disorder [Unknown]
  - Nervous system disorder [Unknown]

NARRATIVE: CASE EVENT DATE: 20240101
